FAERS Safety Report 4408267-0 (Version None)
Quarter: 2004Q3

REPORT INFORMATION
  Report Type: 
  Country: None (occurrence: None)
  Receive Date: 20040722
  Receipt Date: 20040706
  Transmission Date: 20050211
  Serious: Yes (Disabling)
  Sender: FDA-Public Use
  Company Number: B0339487B

PATIENT
  Age: 29 Year
  Sex: Male

DRUGS (2)
  1. TEMOVATE [Suspect]
     Indication: PSORIASIS
     Dosage: SEE DOSAGE TEXT
  2. BETAMETHASONE VALERATE [Concomitant]

REACTIONS (2)
  - BLINDNESS UNILATERAL [None]
  - GLAUCOMA [None]
